FAERS Safety Report 19442921 (Version 1)
Quarter: 2021Q2

REPORT INFORMATION
  Report Type: Report from Study
  Country: GB (occurrence: GB)
  Receive Date: 20210621
  Receipt Date: 20210621
  Transmission Date: 20210717
  Serious: Yes (Death, Life-Threatening, Hospitalization, Other)
  Sender: FDA-Public Use
  Company Number: GB-TEVA-2021-GB-1923749

PATIENT
  Age: 71 Year
  Sex: Female

DRUGS (2)
  1. POMALIDOMIDE [Suspect]
     Active Substance: POMALIDOMIDE
     Indication: PLASMA CELL MYELOMA
     Dosage: 4 MG
     Route: 048
     Dates: start: 20180913, end: 20180914
  2. DEXAMETHASONE. [Suspect]
     Active Substance: DEXAMETHASONE
     Indication: PLASMA CELL MYELOMA
     Dosage: 40 MG
     Route: 048
     Dates: start: 20180913, end: 20180913

REACTIONS (8)
  - Pneumonia [Fatal]
  - Plasma cell myeloma recurrent [Unknown]
  - Tachycardia [Recovered/Resolved with Sequelae]
  - Plasma cell myeloma [Unknown]
  - Thrombocytopenia [Not Recovered/Not Resolved]
  - Neutropenic sepsis [Fatal]
  - Neutropenia [Not Recovered/Not Resolved]
  - Pneumonitis [Not Recovered/Not Resolved]

NARRATIVE: CASE EVENT DATE: 20180915
